FAERS Safety Report 9706228 (Version 1)
Quarter: 2013Q4

REPORT INFORMATION
  Report Type: Spontaneous
  Country: US (occurrence: US)
  Receive Date: 20131125
  Receipt Date: 20131125
  Transmission Date: 20140711
  Serious: Yes (Other)
  Sender: FDA-Public Use
  Company Number: US-AMGEN-USASP2013082342

PATIENT
  Age: 51 Year
  Sex: Female

DRUGS (1)
  1. ENBREL [Suspect]
     Indication: RHEUMATOID ARTHRITIS
     Dosage: 50 MG, QWK
     Route: 065
     Dates: start: 20131012

REACTIONS (9)
  - Suicidal ideation [Not Recovered/Not Resolved]
  - Depression [Not Recovered/Not Resolved]
  - Arthralgia [Not Recovered/Not Resolved]
  - Sleep apnoea syndrome [Not Recovered/Not Resolved]
  - Anxiety [Not Recovered/Not Resolved]
  - Insomnia [Not Recovered/Not Resolved]
  - Crying [Not Recovered/Not Resolved]
  - Headache [Not Recovered/Not Resolved]
  - Injection site pain [Not Recovered/Not Resolved]
